FAERS Safety Report 8685464 (Version 3)
Quarter: 2013Q1

REPORT INFORMATION
  Report Type: Spontaneous
  Country: US (occurrence: US)
  Receive Date: 20120726
  Receipt Date: 20130220
  Transmission Date: 20140127
  Serious: Yes (Hospitalization, Other)
  Sender: FDA-Public Use
  Company Number: US-ASTRAZENECA-2011SE56809

PATIENT
  Age: 61 Year
  Sex: Female
  Weight: 66.2 kg

DRUGS (5)
  1. SEROQUEL [Suspect]
     Indication: AFFECTIVE DISORDER
     Route: 048
  2. SEROQUEL [Suspect]
     Indication: AFFECTIVE DISORDER
     Route: 048
     Dates: start: 2002
  3. SEROQUEL [Suspect]
     Indication: AFFECTIVE DISORDER
     Route: 048
  4. FLUOXETINE [Concomitant]
     Indication: DEPRESSION
     Route: 048
     Dates: start: 2002
  5. FLUOXETINE [Concomitant]
     Indication: DEPRESSION
     Route: 048
     Dates: start: 2002

REACTIONS (6)
  - B-cell lymphoma [Unknown]
  - Alopecia areata [Unknown]
  - Attention deficit/hyperactivity disorder [Unknown]
  - Iron deficiency anaemia [Unknown]
  - Obsessive-compulsive disorder [Unknown]
  - Depression [Unknown]
